FAERS Safety Report 8167648-2 (Version None)
Quarter: 2012Q1

REPORT INFORMATION
  Report Type: 
  Country: None (occurrence: None)
  Receive Date: 20120227
  Receipt Date: 20120222
  Transmission Date: 20120608
  Serious: Yes (Life-Threatening)
  Sender: FDA-Public Use
  Company Number: HU-ROCHE-1042975

PATIENT
  Sex: Female
  Weight: 42 kg

DRUGS (11)
  1. TAMIFLU [Suspect]
     Route: 048
     Dates: start: 20120222
  2. THEOPHYLLINE [Concomitant]
     Dates: start: 20120220
  3. RAMIPRIL W/ HYDROCHLOROTHIAZIDE [Concomitant]
     Dosage: 2.5/12.5 MG
     Dates: start: 20100101, end: 20120221
  4. ALBUTEROL SULFATE AUTOHALER [Concomitant]
     Dosage: 1 PUFF
  5. TIOPRONIN [Concomitant]
     Dosage: 1 CAPS
  6. BISOPROLOL FUMARATE [Concomitant]
     Dates: start: 20120220, end: 20120221
  7. MIDAZOLAM [Concomitant]
     Dates: start: 20120221
  8. LEVOFLOXACIN [Concomitant]
     Dates: start: 20120220
  9. TAMIFLU [Suspect]
     Indication: INFLUENZA
     Route: 042
     Dates: start: 20120220, end: 20120222
  10. FORMOTEROL FUMARATE [Concomitant]
     Dosage: 1 PUII
  11. RAMIPRIL [Concomitant]
     Dates: start: 20100101, end: 20120221

REACTIONS (1)
  - HYPOTENSION [None]
